FAERS Safety Report 16359460 (Version 1)
Quarter: 2019Q2

REPORT INFORMATION
  Report Type: Report from Study
  Country: None (occurrence: BR)
  Receive Date: 20190528
  Receipt Date: 20190528
  Transmission Date: 20190711
  Serious: Yes (Disabling, Other)
  Sender: FDA-Public Use
  Company Number: BR-ABBVIE-19K-020-2797446-00

PATIENT
  Sex: Female
  Weight: 70 kg

DRUGS (2)
  1. HUMIRA [Suspect]
     Active Substance: ADALIMUMAB
     Indication: ANKYLOSING SPONDYLITIS
     Route: 058
     Dates: start: 20190415, end: 2019
  2. HEPATITIS VACCINES [Concomitant]
     Active Substance: UNSPECIFIED INGREDIENT
     Indication: PRODUCT USED FOR UNKNOWN INDICATION

REACTIONS (3)
  - Asthenia [Recovered/Resolved]
  - Chikungunya virus infection [Recovering/Resolving]
  - Mass [Unknown]

NARRATIVE: CASE EVENT DATE: 2019
